FAERS Safety Report 9238978 (Version 1)
Quarter: 2013Q2

REPORT INFORMATION
  Report Type: Spontaneous
  Country: IT (occurrence: IT)
  Receive Date: 20130418
  Receipt Date: 20130418
  Transmission Date: 20140414
  Serious: Yes (Hospitalization)
  Sender: FDA-Public Use
  Company Number: PHHY2013IT037640

PATIENT
  Sex: Female

DRUGS (7)
  1. METFORMIN [Suspect]
     Indication: TYPE 2 DIABETES MELLITUS
     Dosage: 1000 MG, DAILY
     Route: 048
     Dates: start: 20100301, end: 20130412
  2. PRITOR [Concomitant]
  3. EUTIROX [Concomitant]
  4. XANAX [Concomitant]
  5. RYTMONORM [Concomitant]
  6. NEBIVOLOL [Concomitant]
  7. INSULIN ASPART [Concomitant]

REACTIONS (2)
  - Metabolic acidosis [Recovered/Resolved]
  - Diarrhoea [Recovered/Resolved]
